FAERS Safety Report 8329111-5 (Version None)
Quarter: 2012Q2

REPORT INFORMATION
  Report Type: 
  Country: None (occurrence: None)
  Receive Date: 20120502
  Receipt Date: 20101014
  Transmission Date: 20120825
  Serious: No
  Sender: FDA-Public Use
  Company Number: US-TEVA-2010005426

PATIENT
  Sex: Male
  Weight: 74.91 kg

DRUGS (5)
  1. NUVIGIL [Suspect]
     Indication: CHRONIC INFLAMMATORY DEMYELINATING POLYRADICULONEUROPATHY
  2. FENTANYL [Concomitant]
     Dates: start: 20100401
  3. CLONADINE [Concomitant]
     Dates: start: 20100401
  4. BACLOFEN [Concomitant]
     Dates: start: 20100401
  5. NUVIGIL [Suspect]
     Indication: SLEEP APNOEA SYNDROME
     Dosage: 150 MILLIGRAM;
     Route: 048
     Dates: start: 20101012

REACTIONS (4)
  - FEELING ABNORMAL [None]
  - DRUG EFFECT INCREASED [None]
  - ENERGY INCREASED [None]
  - HYPERVIGILANCE [None]
